FAERS Safety Report 17191568 (Version 2)
Quarter: 2020Q4

REPORT INFORMATION
  Report Type: Report from Study
  Country: TR (occurrence: TR)
  Receive Date: 20191223
  Receipt Date: 20201221
  Transmission Date: 20210113
  Serious: Yes (Death)
  Sender: FDA-Public Use
  Company Number: TR-PFIZER INC-2019548447

PATIENT

DRUGS (4)
  1. CYTARABINE. [Suspect]
     Active Substance: CYTARABINE
     Dosage: UNK UNK, EVERY 3 WEEKS (DAY 0)
     Route: 037
  2. IDARUBICIN HCL [Suspect]
     Active Substance: IDARUBICIN HYDROCHLORIDE
     Indication: ACUTE MYELOID LEUKAEMIA
     Dosage: 8 MG/M2, CYCLIC (0-2 DAYS, 3 DOSES, EVERY 3 WEEKS)
     Route: 042
  3. CYTARABINE. [Suspect]
     Active Substance: CYTARABINE
     Indication: ACUTE MYELOID LEUKAEMIA
     Dosage: 100 MG/M2, CYCLIC (100 MG/M2 EVERY 12 HR FOR 30 MINUTES (IV), 14 DOSES, EVERY 3 WEEKS)
     Route: 042
  4. VP-16 [Suspect]
     Active Substance: ETOPOSIDE
     Indication: ACUTE MYELOID LEUKAEMIA
     Dosage: 100 MG/M2, CYCLIC (100 MG/M2/DAY FOR 60 MINUTES (IV), 3-5 DAYS, 3 DOSES, EVERY 3 WEEKS)
     Route: 042

REACTIONS (1)
  - Death [Fatal]
